FAERS Safety Report 9831247 (Version 1)
Quarter: 2014Q1

REPORT INFORMATION
  Report Type: Other
  Country: GB (occurrence: GB)
  Receive Date: 20140121
  Receipt Date: 20140121
  Transmission Date: 20141002
  Serious: Yes (Disabling)
  Sender: FDA-Public Use
  Company Number: GB-LUPIN PHARMACEUTICALS INC.-E2B_00001604

PATIENT
  Age: 40 Year
  Sex: Female

DRUGS (4)
  1. QUETIAPINE [Suspect]
     Indication: DEPRESSION
     Route: 048
     Dates: start: 201111, end: 201304
  2. VENLAFAXINE [Concomitant]
     Indication: PRODUCT USED FOR UNKNOWN INDICATION
     Route: 065
     Dates: start: 201111
  3. MIRTAZAPINE [Concomitant]
     Indication: PRODUCT USED FOR UNKNOWN INDICATION
     Route: 065
     Dates: start: 201111
  4. TEGRETOL [Concomitant]
     Indication: PRODUCT USED FOR UNKNOWN INDICATION
     Route: 065
     Dates: start: 201111

REACTIONS (4)
  - Grimacing [Not Recovered/Not Resolved]
  - Speech disorder [Unknown]
  - Tardive dyskinesia [Not Recovered/Not Resolved]
  - Dysarthria [Not Recovered/Not Resolved]
